FAERS Safety Report 10172335 (Version 1)
Quarter: 2014Q2

REPORT INFORMATION
  Report Type: Spontaneous
  Country: US (occurrence: US)
  Receive Date: 20140515
  Receipt Date: 20140515
  Transmission Date: 20141212
  Serious: Yes (Other)
  Sender: FDA-Public Use
  Company Number: US-BIOGENIDEC-2014BI045117

PATIENT
  Age: 40 Year
  Sex: Female
  Weight: 53 kg

DRUGS (5)
  1. AVONEX [Suspect]
     Indication: MULTIPLE SCLEROSIS
     Route: 030
  2. AMPYRA [Concomitant]
     Indication: GAIT DISTURBANCE
     Route: 048
     Dates: start: 20130920
  3. GABAPENTIN [Concomitant]
  4. IBUPROFEN [Concomitant]
  5. VITAMIN D [Concomitant]

REACTIONS (6)
  - Autoimmune hepatitis [Unknown]
  - Carpal tunnel syndrome [Unknown]
  - Gait disturbance [Unknown]
  - Muscle spasms [Unknown]
  - Osteopenia [Unknown]
  - Writer^s cramp [Unknown]
